FAERS Safety Report 15769072 (Version 1)
Quarter: 2018Q4

REPORT INFORMATION
  Report Type: Spontaneous
  Country: US (occurrence: US)
  Receive Date: 20181228
  Receipt Date: 20181228
  Transmission Date: 20190205
  Serious: No
  Sender: FDA-Public Use
  Company Number: US-JNJFOC-20181142038

PATIENT
  Age: 81 Year
  Sex: Male
  Weight: 101 kg

DRUGS (17)
  1. IBRUTINIB [Suspect]
     Active Substance: IBRUTINIB
     Indication: B-CELL SMALL LYMPHOCYTIC LYMPHOMA
     Route: 048
     Dates: start: 2016
  2. POTASSIUM CHLORIDE. [Concomitant]
     Active Substance: POTASSIUM CHLORIDE
     Route: 048
  3. BETAMETHASONE CLOTRIMAZOLE [Concomitant]
     Active Substance: BETAMETHASONE DIPROPIONATE\CLOTRIMAZOLE
     Route: 061
  4. EFUDEX [Concomitant]
     Active Substance: FLUOROURACIL
     Route: 061
  5. ELIQUIS [Concomitant]
     Active Substance: APIXABAN
     Indication: ATRIAL FIBRILLATION
     Route: 048
     Dates: start: 201609
  6. EMLA [Concomitant]
     Active Substance: LIDOCAINE\PRILOCAINE
     Dosage: 2.5 %, UNK
     Route: 061
  7. METHYLPREDNISOLONE. [Concomitant]
     Active Substance: METHYLPREDNISOLONE
     Route: 048
  8. ASPIR 81 [Concomitant]
     Route: 048
  9. FOLIC ACID. [Concomitant]
     Active Substance: FOLIC ACID
     Route: 048
  10. ACYCLOVIR. [Concomitant]
     Active Substance: ACYCLOVIR
     Dosage: 400 MG, BID
     Route: 048
     Dates: start: 20110106
  11. IBRUTINIB [Suspect]
     Active Substance: IBRUTINIB
     Indication: B-CELL SMALL LYMPHOCYTIC LYMPHOMA
     Route: 048
     Dates: start: 201609, end: 2016
  12. DOXYCYCLINE. [Suspect]
     Active Substance: DOXYCYCLINE
     Indication: STAPHYLOCOCCAL SKIN INFECTION
     Route: 065
  13. VITAMIN B12 [Concomitant]
     Active Substance: CYANOCOBALAMIN
     Dosage: 2500 MCG, UNK
     Route: 060
  14. VITAMIN D3 [Concomitant]
     Active Substance: CHOLECALCIFEROL
     Route: 048
  15. IBRUTINIB [Suspect]
     Active Substance: IBRUTINIB
     Indication: CHRONIC LYMPHOCYTIC LEUKAEMIA
     Route: 048
     Dates: start: 201609, end: 2016
  16. IBRUTINIB [Suspect]
     Active Substance: IBRUTINIB
     Indication: CHRONIC LYMPHOCYTIC LEUKAEMIA
     Route: 048
     Dates: start: 2016
  17. LASIX [Suspect]
     Active Substance: FUROSEMIDE
     Indication: CARDIAC FAILURE CONGESTIVE
     Route: 048

REACTIONS (32)
  - Skin irritation [Unknown]
  - Kyphosis [Unknown]
  - Heart rate irregular [Unknown]
  - Chills [Unknown]
  - Diarrhoea [Unknown]
  - Dizziness [Unknown]
  - Increased tendency to bruise [Unknown]
  - Vomiting [Unknown]
  - Diverticulum intestinal [Unknown]
  - Spigelian hernia [Unknown]
  - Bone pain [Unknown]
  - Hypertension [Unknown]
  - Visual impairment [Unknown]
  - Rash pruritic [Recovered/Resolved]
  - Ecchymosis [Unknown]
  - Myalgia [Unknown]
  - Nausea [Unknown]
  - Splenomegaly [Unknown]
  - Bronchial disorder [Unknown]
  - Dehydration [Unknown]
  - Anxiety [Unknown]
  - Lymphoedema [Unknown]
  - Oedema peripheral [Unknown]
  - Pruritus [Recovering/Resolving]
  - Malaise [Unknown]
  - Staphylococcal skin infection [Unknown]
  - Nocturia [Unknown]
  - Thyroid mass [Unknown]
  - Atrial fibrillation [Unknown]
  - Fatigue [Unknown]
  - Epistaxis [Unknown]
  - Asthenia [Unknown]

NARRATIVE: CASE EVENT DATE: 20170327
